FAERS Safety Report 7611150-0 (Version None)
Quarter: 2011Q3

REPORT INFORMATION
  Report Type: 
  Country: None (occurrence: None)
  Receive Date: 20110707
  Receipt Date: 20110621
  Transmission Date: 20111222
  Serious: Yes (Other)
  Sender: FDA-Public Use
  Company Number: 961811

PATIENT
  Age: 36 Year
  Sex: Female

DRUGS (1)
  1. CIPROFLOXACIN [Suspect]

REACTIONS (3)
  - HYPERSENSITIVITY [None]
  - LIVER DISORDER [None]
  - HEPATITIS CHOLESTATIC [None]
